FAERS Safety Report 5860714-3 (Version None)
Quarter: 2008Q3

REPORT INFORMATION
  Report Type: 
  Country: None (occurrence: None)
  Receive Date: 20080826
  Receipt Date: 20080813
  Transmission Date: 20090109
  Serious: Yes (Hospitalization)
  Sender: FDA-Public Use
  Company Number: 237693J08USA

PATIENT
  Age: 49 Year
  Sex: Male
  Weight: 80.7403 kg

DRUGS (4)
  1. REBIF [Suspect]
     Indication: MULTIPLE SCLEROSIS
     Dosage: 44 MCG, 3 IN 1 WEEKS, SUBCUTANEOUS
     Route: 058
     Dates: start: 20050101, end: 20080501
  2. ACTONEL [Concomitant]
  3. CALTRATE AND D (LEKOVIT CA) [Concomitant]
  4. GABAPENTIN (GABAPETINT) [Concomitant]

REACTIONS (4)
  - ASTHENIA [None]
  - CHILLS [None]
  - FATIGUE [None]
  - PYREXIA [None]
